FAERS Safety Report 7197125-7 (Version None)
Quarter: 2010Q4

REPORT INFORMATION
  Report Type: 
  Country: None (occurrence: None)
  Receive Date: 20101224
  Receipt Date: 20101210
  Transmission Date: 20110411
  Serious: Yes (Hospitalization, Other)
  Sender: FDA-Public Use
  Company Number: PHEH2007US12178

PATIENT
  Sex: Male
  Weight: 78.912 kg

DRUGS (92)
  1. ZOMETA [Suspect]
     Indication: MULTIPLE MYELOMA
     Dosage: 4 MG
     Route: 042
     Dates: start: 20050315, end: 20070601
  2. ALKERAN [Suspect]
  3. GLUCOPHAGE [Concomitant]
  4. OXYCONTIN [Concomitant]
     Dosage: 20 MG / EVERY 12 HRS
     Dates: start: 20040409
  5. PERCOCET [Concomitant]
     Dosage: 10/500 / PRN
  6. GLIPIZIDE [Concomitant]
  7. CALCIUM CARBONATE W/VITAMIN D NOS [Concomitant]
  8. MULTIVITAMIN [Concomitant]
  9. RADIOTHERAPY [Concomitant]
     Dosage: UNK
     Dates: start: 20040419, end: 20040501
  10. INSULIN HUMAN [Concomitant]
  11. MS CONTIN [Concomitant]
  12. NEURONTIN [Concomitant]
  13. ZESTRIL [Concomitant]
  14. LACTULOSE [Concomitant]
  15. COLACE [Concomitant]
  16. REGLAN [Concomitant]
  17. ASTRAMORPH PF [Concomitant]
  18. DURAMORPH PF [Concomitant]
  19. DURAGESIC-50 [Concomitant]
     Dosage: UNK
     Dates: end: 20040519
  20. DURAGESIC-50 [Concomitant]
     Dosage: 200
     Dates: start: 20040519
  21. PRILOSEC [Concomitant]
  22. TENORMIN [Concomitant]
  23. LIORESAL [Concomitant]
  24. ZANTAC [Concomitant]
  25. ZANAFLEX [Concomitant]
  26. SENNA [Concomitant]
  27. CENTRUM SILVER [Concomitant]
  28. B-COMPLEX ^KRKA^ [Concomitant]
  29. ACTIQ [Concomitant]
  30. LIDODERM [Concomitant]
  31. MIRALAX [Concomitant]
  32. LANTUS [Concomitant]
  33. CHEMOTHERAPEUTICS NOS [Concomitant]
  34. RADIATION THERAPY [Concomitant]
  35. TIZANIDINE HCL [Concomitant]
  36. DULCOLAX [Concomitant]
  37. ATENOLOL [Concomitant]
  38. SENOKOT                                 /UNK/ [Concomitant]
  39. MORPHINE SULFATE [Concomitant]
  40. BACLOFEN [Concomitant]
  41. PROTONIX [Concomitant]
  42. LOVENOX [Concomitant]
  43. GLYBURIDE [Concomitant]
  44. PIOGLITAZONE [Concomitant]
  45. MORPHINE [Concomitant]
  46. THALIDOMIDE [Concomitant]
     Dosage: 200
     Dates: start: 20040617
  47. METFORMIN [Concomitant]
     Dosage: 1500 / BID
  48. ACTOS [Concomitant]
     Dosage: 15 / QD
  49. DEXAMETHASONE [Concomitant]
     Dosage: 4 / Q6
     Dates: end: 20040519
  50. DEXAMETHASONE [Concomitant]
     Dosage: 4 / Q12
     Dates: start: 20040519
  51. ROXANOL [Concomitant]
     Dosage: UNK
  52. LISINOPRIL [Concomitant]
  53. AMBIEN [Concomitant]
  54. PEPCID [Concomitant]
  55. FLEXERIL [Concomitant]
  56. DILAUDID [Concomitant]
  57. RIMANTADINE HYDROCHLORIDE [Concomitant]
  58. NPH INSULIN [Concomitant]
  59. FLUOXETINE [Concomitant]
  60. ENALAPRIL MALEATE [Concomitant]
  61. ACETAMINOPHEN AND HYDROCODONE BITARTRATE [Concomitant]
  62. FLUTICASONE PROPIONATE [Concomitant]
  63. INSULIN GLARGINE [Concomitant]
  64. SULFAMETHOXAZOLE AND TRIMETHOPRIM [Concomitant]
  65. ACYCLOVIR SODIUM [Concomitant]
  66. GABAPENTIN [Concomitant]
  67. PRAVASTATIN [Concomitant]
  68. CHLORHEXIDINE [Concomitant]
  69. FENTANYL [Concomitant]
  70. AMOXICILLIN [Concomitant]
  71. MIRTAZAPINE [Concomitant]
  72. NAPROXEN [Concomitant]
  73. LOVAZA [Concomitant]
  74. PREDNISONE [Concomitant]
  75. BACTRIM [Concomitant]
  76. LEVAQUIN [Concomitant]
  77. DIFLUCAN [Concomitant]
  78. PENICILLIN ^GRUNENTHAL^ [Concomitant]
  79. FLAGYL ^RHONE-POULENC RORER^ [Concomitant]
  80. NOVOLOG [Concomitant]
  81. METHADONE [Concomitant]
  82. BENADRYL ^ACHE^ [Concomitant]
  83. ACETAMINOPHEN [Concomitant]
  84. CATHFLO ACTIVASE [Concomitant]
  85. LOPERAMIDE [Concomitant]
  86. ATIVAN [Concomitant]
  87. MAALOX                                  /NET/ [Concomitant]
  88. MICRO-K [Concomitant]
     Dosage: UNK
  89. MAXIPIME [Concomitant]
  90. MAGNESIUM SULFATE [Concomitant]
  91. ZOFRAN [Concomitant]
  92. ALLOPURINOL [Concomitant]

REACTIONS (45)
  - ANHEDONIA [None]
  - ANXIETY [None]
  - ARTHRALGIA [None]
  - ARTHROPATHY [None]
  - CENTRAL VENOUS CATHETER REMOVAL [None]
  - CENTRAL VENOUS CATHETERISATION [None]
  - DECREASED APPETITE [None]
  - DEFORMITY [None]
  - DEPRESSION [None]
  - DISCOMFORT [None]
  - DYSURIA [None]
  - EMOTIONAL DISTRESS [None]
  - EXOSTOSIS [None]
  - FAILURE TO THRIVE [None]
  - HAEMATOCHEZIA [None]
  - HYPOPHAGIA [None]
  - INGUINAL HERNIA [None]
  - INJURY [None]
  - INTERVERTEBRAL DISC DEGENERATION [None]
  - INTERVERTEBRAL DISC PROTRUSION [None]
  - LIFE EXPECTANCY SHORTENED [None]
  - LIGHT CHAIN ANALYSIS INCREASED [None]
  - MUCOSAL INFLAMMATION [None]
  - MYELITIS TRANSVERSE [None]
  - MYOFASCIAL PAIN SYNDROME [None]
  - NEOPLASM MALIGNANT [None]
  - NEURALGIA [None]
  - NEUTROPHIL COUNT DECREASED [None]
  - OSTEOARTHRITIS [None]
  - OSTEONECROSIS OF JAW [None]
  - OSTEOPOROSIS [None]
  - PAIN [None]
  - PLEURAL FIBROSIS [None]
  - POST LAMINECTOMY SYNDROME [None]
  - PROSTATE CANCER [None]
  - PROSTATECTOMY [None]
  - RADIOTHERAPY [None]
  - RASH PRURITIC [None]
  - RENAL FAILURE [None]
  - SCIATICA [None]
  - SCROTAL IRRITATION [None]
  - SPINAL COLUMN STENOSIS [None]
  - SPONDYLITIS [None]
  - STEM CELL TRANSPLANT [None]
  - WHITE BLOOD CELL COUNT DECREASED [None]
